FAERS Safety Report 8835701 (Version 4)
Quarter: 2013Q3

REPORT INFORMATION
  Report Type: Report from Study
  Country: JP (occurrence: JP)
  Receive Date: 20121011
  Receipt Date: 20130911
  Transmission Date: 20140515
  Serious: Yes (Other)
  Sender: FDA-Public Use
  Company Number: JP-VERTEX PHARMACEUTICAL INC.-AE-2012-008086

PATIENT
  Age: 61 Year
  Sex: Male

DRUGS (13)
  1. VX-950 (TELAPREVIR) [Suspect]
     Indication: CHRONIC HEPATITIS C
     Dosage: 2250 MG, QD
     Route: 048
     Dates: start: 20120410, end: 20120605
  2. PEGINTRON [Suspect]
     Indication: CHRONIC HEPATITIS C
     Dosage: 1.5 ?G/KG, QW
     Route: 058
     Dates: start: 20120410, end: 20120605
  3. REBETOL [Suspect]
     Indication: CHRONIC HEPATITIS C
     Dosage: 1000 MG, QD
     Route: 048
     Dates: start: 20120410, end: 20120423
  4. REBETOL [Suspect]
     Dosage: 800 MG, QD
     Route: 048
     Dates: start: 20120424, end: 20120430
  5. REBETOL [Suspect]
     Dosage: 400 MG, QD
     Route: 048
     Dates: start: 20120501, end: 20120514
  6. REBETOL [Suspect]
     Dosage: 200 MG, QD
     Route: 048
     Dates: start: 20120515, end: 20120605
  7. VONAFEC [Concomitant]
     Dosage: 50 MG, PRN
     Route: 054
     Dates: start: 20120411, end: 20120412
  8. SG [Concomitant]
     Dosage: 1 G, PRN
     Route: 048
     Dates: start: 20120515
  9. TAKEPRON [Concomitant]
     Dosage: 15 MG, QD
     Route: 048
     Dates: end: 20120612
  10. GASMOTIN [Concomitant]
     Dosage: 15 MG, QD
     Route: 048
     Dates: end: 20120612
  11. CRAVIT [Concomitant]
     Dosage: UNK, BID
     Route: 047
     Dates: start: 20120828, end: 20120925
  12. HYALEIN [Concomitant]
     Dosage: UNK, BID
     Route: 047
     Dates: start: 20120828, end: 20120925
  13. LORFENAMIN [Concomitant]
     Dosage: 60 MG, PRN
     Route: 048
     Dates: start: 20120605

REACTIONS (2)
  - Neutropenia [Recovered/Resolved]
  - Erythema multiforme [Recovered/Resolved]
